FAERS Safety Report 8466526-9 (Version None)
Quarter: 2012Q2

REPORT INFORMATION
  Report Type: 
  Country: None (occurrence: None)
  Receive Date: 20120626
  Receipt Date: 20120620
  Transmission Date: 20120825
  Serious: Yes (Other)
  Sender: FDA-Public Use
  Company Number: US-PFIZER INC-2012148509

PATIENT

DRUGS (1)
  1. LIPITOR [Suspect]

REACTIONS (1)
  - DEMENTIA [None]
